FAERS Safety Report 6792931-2 (Version None)
Quarter: 2010Q2

REPORT INFORMATION
  Report Type: 
  Country: None (occurrence: None)
  Receive Date: 20100624
  Receipt Date: 20081029
  Transmission Date: 20101027
  Serious: No
  Sender: FDA-Public Use
  Company Number: US-PFIZER INC-2008091515

PATIENT
  Sex: Female
  Weight: 72.7 kg

DRUGS (5)
  1. AROMASIN [Suspect]
     Indication: BREAST CANCER
     Route: 048
     Dates: start: 20080101
  2. ALLEGRA [Concomitant]
     Indication: HYPERSENSITIVITY
  3. PAXIL [Concomitant]
     Indication: ANXIETY
  4. VALIUM [Concomitant]
  5. ACTONEL [Concomitant]

REACTIONS (6)
  - ARTHRALGIA [None]
  - GAIT DISTURBANCE [None]
  - MUSCULAR WEAKNESS [None]
  - MUSCULOSKELETAL STIFFNESS [None]
  - PAIN IN EXTREMITY [None]
  - VITAMIN D DECREASED [None]
